FAERS Safety Report 7732390-6 (Version None)
Quarter: 2011Q3

REPORT INFORMATION
  Report Type: 
  Country: None (occurrence: None)
  Receive Date: 20110906
  Receipt Date: 20110826
  Transmission Date: 20111222
  Serious: Yes (Other)
  Sender: FDA-Public Use
  Company Number: JP-ASTRAZENECA-2011SE51338

PATIENT
  Age: 28468 Day
  Sex: Male

DRUGS (9)
  1. HALOPERIDOL [Concomitant]
     Indication: RESTLESSNESS
     Dates: start: 20110412, end: 20110412
  2. LYRICA [Suspect]
     Route: 048
     Dates: start: 20110418, end: 20110503
  3. VANCOMYCIN [Suspect]
     Indication: MENINGITIS
     Route: 048
     Dates: start: 20110412, end: 20110425
  4. SEFIROM [Concomitant]
     Indication: MENINGITIS
     Dates: start: 20110412, end: 20110412
  5. LYRICA [Suspect]
     Indication: LUMBAR SPINAL STENOSIS
     Route: 048
     Dates: start: 20110323, end: 20110411
  6. MEROPENEM [Suspect]
     Indication: MENINGITIS
     Route: 042
     Dates: start: 20110412, end: 20110425
  7. VALTREX [Concomitant]
     Indication: ORAL HERPES
     Route: 048
     Dates: start: 20110418, end: 20110427
  8. LIORESAL [Concomitant]
     Route: 048
  9. DECADRON [Concomitant]
     Indication: MENINGITIS
     Dates: start: 20110412, end: 20110415

REACTIONS (1)
  - TUBULOINTERSTITIAL NEPHRITIS [None]
